FAERS Safety Report 18650062 (Version 2)
Quarter: 2021Q1

REPORT INFORMATION
  Report Type: Spontaneous
  Country: JP (occurrence: JP)
  Receive Date: 20201222
  Receipt Date: 20210106
  Transmission Date: 20210419
  Serious: Yes (Death)
  Sender: FDA-Public Use
  Company Number: NVSJ2020JP014009

PATIENT
  Age: 90 Year
  Sex: Female

DRUGS (4)
  1. ARTIST [Suspect]
     Active Substance: CARVEDILOL
     Indication: CARDIAC FAILURE CHRONIC
     Dosage: 20 MG (CRUSH)
     Route: 048
  2. ENTRESTO [Suspect]
     Active Substance: SACUBITRIL\VALSARTAN
     Indication: CARDIAC FAILURE CHRONIC
     Dosage: 100 MG
     Route: 048
     Dates: start: 20201004
  3. ARTIST [Suspect]
     Active Substance: CARVEDILOL
     Dosage: 5 MG
     Route: 048
  4. ENTRESTO [Suspect]
     Active Substance: SACUBITRIL\VALSARTAN
     Indication: CHEST PAIN

REACTIONS (2)
  - Death [Fatal]
  - Feeding disorder [Unknown]

NARRATIVE: CASE EVENT DATE: 2020
